FAERS Safety Report 23911225 (Version 1)
Quarter: 2024Q2

REPORT INFORMATION
  Report Type: Spontaneous
  Country: US (occurrence: None)
  Receive Date: 20240528
  Receipt Date: 20240528
  Transmission Date: 20240715
  Serious: Yes (Hospitalization)
  Sender: FDA-Public Use
  Company Number: None

PATIENT
  Sex: Female

DRUGS (3)
  1. EPOPROSTENOL [Suspect]
     Active Substance: EPOPROSTENOL
     Indication: Pulmonary arterial hypertension
     Dosage: OTHER QUANTITY : NG/KG/MIN;?OTHER FREQUENCY : CONTINOUS;?
     Route: 042
     Dates: start: 202405
  2. remunity [Concomitant]
  3. PUMP REMUNITY [Concomitant]

REACTIONS (3)
  - Nausea [None]
  - Headache [None]
  - Pain in jaw [None]
